FAERS Safety Report 25766209 (Version 1)
Quarter: 2025Q3

REPORT INFORMATION
  Report Type: Spontaneous
  Country: US (occurrence: US)
  Receive Date: 20250905
  Receipt Date: 20250905
  Transmission Date: 20251021
  Serious: No
  Sender: DOMPE FARMACEUTICI
  Company Number: US-FARMAPROD-202408-2876

PATIENT
  Sex: Female

DRUGS (26)
  1. OXERVATE [Suspect]
     Active Substance: CENEGERMIN-BKBJ
     Indication: Neurotrophic keratopathy
     Route: 047
     Dates: start: 20240722, end: 20240914
  2. OXERVATE [Suspect]
     Active Substance: CENEGERMIN-BKBJ
  3. OXERVATE [Suspect]
     Active Substance: CENEGERMIN-BKBJ
  4. OXERVATE [Suspect]
     Active Substance: CENEGERMIN-BKBJ
     Dates: start: 20240722, end: 20240914
  5. MAGNESIUM [Concomitant]
     Active Substance: MAGNESIUM
  6. ZINC [Concomitant]
     Active Substance: ZINC
  7. OMEGA 3-6-9 COMPLEX [Concomitant]
  8. FLAXSEED [Concomitant]
     Active Substance: FLAX SEED
  9. CALCIUM [Concomitant]
     Active Substance: CALCIUM
  10. BIOTIN [Concomitant]
     Active Substance: BIOTIN
  11. VITAMIN D3 COMPLETE [Concomitant]
  12. DIAZEPAM [Concomitant]
     Active Substance: DIAZEPAM
  13. REFRESH OPTIVE ADVANCED [Concomitant]
     Active Substance: CARBOXYMETHYLCELLULOSE SODIUM\GLYCERIN\POLYSORBATE 80
  14. GENTEAL TEARS (MILD) [Concomitant]
     Active Substance: DEXTRAN 70\HYPROMELLOSE 2910 (4000 MPA.S)
  15. ZIOPTAN [Concomitant]
     Active Substance: TAFLUPROST
  16. DOXYCYCLINE HYCLATE [Concomitant]
     Active Substance: DOXYCYCLINE HYCLATE
  17. ASPIRIN [Concomitant]
     Active Substance: ASPIRIN
  18. HYDROCHLOROTHIAZIDE\TRIAMTERENE [Concomitant]
     Active Substance: HYDROCHLOROTHIAZIDE\TRIAMTERENE
  19. POTASSIUM CHLORIDE [Concomitant]
     Active Substance: POTASSIUM CHLORIDE
  20. ALENDRONATE SODIUM [Concomitant]
     Active Substance: ALENDRONATE SODIUM
  21. ROSUVASTATIN CALCIUM [Concomitant]
     Active Substance: ROSUVASTATIN CALCIUM
  22. PREGABALIN [Concomitant]
     Active Substance: PREGABALIN
  23. METOPROLOL SUCCINATE [Concomitant]
     Active Substance: METOPROLOL SUCCINATE
  24. LISINOPRIL [Concomitant]
     Active Substance: LISINOPRIL
  25. CELEBREX [Concomitant]
     Active Substance: CELECOXIB
  26. AUTOLOGOUS HUMAN CORNEAL EPITHELIAL CELLS [Concomitant]
     Active Substance: AUTOLOGOUS HUMAN CORNEAL EPITHELIAL CELLS

REACTIONS (9)
  - Eye irritation [Unknown]
  - Ocular discomfort [Unknown]
  - Photophobia [Not Recovered/Not Resolved]
  - Foreign body sensation in eyes [Unknown]
  - Lacrimation increased [Not Recovered/Not Resolved]
  - Vision blurred [Not Recovered/Not Resolved]
  - Eye pain [Not Recovered/Not Resolved]
  - Eyelid pain [Not Recovered/Not Resolved]
  - Headache [Not Recovered/Not Resolved]
